FAERS Safety Report 6172583-5 (Version None)
Quarter: 2009Q2

REPORT INFORMATION
  Report Type: 
  Country: None (occurrence: None)
  Receive Date: 20090428
  Receipt Date: 20090428
  Transmission Date: 20091009
  Serious: Yes (Life-Threatening)
  Sender: FDA-Public Use
  Company Number: None

PATIENT
  Age: 17 Year
  Sex: Male

DRUGS (2)
  1. PROACTIV LOTION 2.5% [Suspect]
     Indication: ACNE
     Dosage: 060 PER LABEL, TOPICAL
     Route: 061
     Dates: start: 20081209, end: 20081217
  2. PROACTIV CLEANSER [Suspect]
     Indication: ACNE
     Dosage: PER LABEL, TOPICAL
     Route: 061
     Dates: start: 20081209, end: 20081217

REACTIONS (5)
  - DIZZINESS [None]
  - DYSPNOEA [None]
  - HEARING IMPAIRED [None]
  - LOSS OF CONSCIOUSNESS [None]
  - SPEECH DISORDER [None]
